FAERS Safety Report 18518290 (Version 19)
Quarter: 2022Q2

REPORT INFORMATION
  Report Type: Report from Study
  Country: US (occurrence: US)
  Receive Date: 20201118
  Receipt Date: 20220530
  Transmission Date: 20220721
  Serious: Yes (Other)
  Sender: FDA-Public Use
  Company Number: US-SHIRE-US202015426

PATIENT
  Age: 59 Year
  Sex: Female

DRUGS (4)
  1. HUMAN IMMUNOGLOBULIN G\HYALURONIDASE RECOMBINANT HUMAN [Suspect]
     Active Substance: HUMAN IMMUNOGLOBULIN G\HYALURONIDASE RECOMBINANT HUMAN
     Indication: Selective IgG subclass deficiency
     Dosage: 15 GRAM, Q2WEEKS
     Route: 065
  2. HUMAN IMMUNOGLOBULIN G\HYALURONIDASE RECOMBINANT HUMAN [Suspect]
     Active Substance: HUMAN IMMUNOGLOBULIN G\HYALURONIDASE RECOMBINANT HUMAN
     Indication: Primary immunodeficiency syndrome
     Dosage: 30 GRAM, Q2WEEKS
     Route: 065
  3. HUMAN IMMUNOGLOBULIN G\HYALURONIDASE RECOMBINANT HUMAN [Suspect]
     Active Substance: HUMAN IMMUNOGLOBULIN G\HYALURONIDASE RECOMBINANT HUMAN
     Dosage: 30 GRAM, 2/MONTH
     Route: 065
  4. COVID-19 VACCINE NOS [Suspect]
     Active Substance: COVID-19 VACCINE NOS
     Indication: COVID-19 immunisation
     Dosage: UNK
     Route: 065

REACTIONS (35)
  - Bladder cancer [Unknown]
  - Neoplasm malignant [Unknown]
  - Haematemesis [Unknown]
  - Sjogren^s syndrome [Unknown]
  - Feeling abnormal [Unknown]
  - Suspected COVID-19 [Unknown]
  - Epistaxis [Unknown]
  - Anxiety [Unknown]
  - Dental operation [Unknown]
  - Dehydration [Unknown]
  - Oropharyngeal pain [Unknown]
  - Abdominal discomfort [Unknown]
  - Illness [Unknown]
  - Depression [Unknown]
  - Peripheral swelling [Unknown]
  - Insomnia [Unknown]
  - Pain [Unknown]
  - Stress [Unknown]
  - Chronic fatigue syndrome [Unknown]
  - Nightmare [Unknown]
  - Lymphadenopathy [Unknown]
  - Blood cholesterol increased [Unknown]
  - Tooth disorder [Unknown]
  - Asthma [Unknown]
  - Infusion site mass [Unknown]
  - Infusion site haemorrhage [Unknown]
  - Infusion site extravasation [Unknown]
  - Arthralgia [Unknown]
  - Fatigue [Unknown]
  - Back pain [Unknown]
  - Dizziness [Unknown]
  - Nausea [Unknown]
  - Dyspnoea [Unknown]
  - Device infusion issue [Unknown]
  - Inappropriate schedule of product administration [Unknown]

NARRATIVE: CASE EVENT DATE: 20200924
